FAERS Safety Report 7783050-7 (Version None)
Quarter: 2011Q3

REPORT INFORMATION
  Report Type: 
  Country: None (occurrence: None)
  Receive Date: 20110928
  Receipt Date: 20110927
  Transmission Date: 20111222
  Serious: Yes (Other)
  Sender: FDA-Public Use
  Company Number: US-PFIZER INC-2011230167

PATIENT
  Sex: Male

DRUGS (2)
  1. ADVIL PM [Suspect]
     Dosage: UNK
     Route: 048
  2. ACETYLSALICYLIC ACID SRT [Suspect]
     Indication: CARDIAC OPERATION
     Dosage: UNK, DAILY
     Route: 048

REACTIONS (1)
  - HAEMATOCHEZIA [None]
